FAERS Safety Report 14373723 (Version 4)
Quarter: 2018Q2

REPORT INFORMATION
  Report Type: Spontaneous
  Country: US (occurrence: US)
  Receive Date: 20180110
  Receipt Date: 20180604
  Transmission Date: 20180711
  Serious: Yes (Other)
  Sender: FDA-Public Use
  Company Number: US-CELGENEUS-USA-20180102686

PATIENT
  Age: 76 Year
  Sex: Female

DRUGS (1)
  1. OTEZLA [Suspect]
     Active Substance: APREMILAST
     Indication: PSORIASIS
     Dosage: 30 MILLIGRAM
     Route: 048
     Dates: start: 20180104

REACTIONS (10)
  - Drug ineffective [Unknown]
  - Impaired healing [Unknown]
  - Dyspepsia [Unknown]
  - Diarrhoea [Unknown]
  - Squamous cell carcinoma of skin [Unknown]
  - Vomiting [Unknown]
  - Rectal haemorrhage [Unknown]
  - Nausea [Unknown]
  - Weight decreased [Unknown]
  - Basal cell carcinoma [Unknown]

NARRATIVE: CASE EVENT DATE: 2018
